FAERS Safety Report 7902343-3 (Version None)
Quarter: 2011Q4

REPORT INFORMATION
  Report Type: 
  Country: None (occurrence: None)
  Receive Date: 20111108
  Receipt Date: 20111101
  Transmission Date: 20120403
  Serious: Yes (Hospitalization)
  Sender: FDA-Public Use
  Company Number: NL-B.I. PHARMACEUTICALS,INC./RIDGEFIELD-2011-NL-00339NL

PATIENT
  Sex: Male

DRUGS (7)
  1. METOPROLOL SUCCINATE [Concomitant]
     Dosage: 100 MG
  2. FLUTICASONE PROPIONATE [Concomitant]
     Dosage: NOSESPRAY 1S2BN
     Route: 055
  3. ENALAPRIL MALEATE [Concomitant]
     Dosage: 20 MG
  4. SIMVASTATIN [Concomitant]
     Dosage: 20 MG
     Dates: start: 20110829
  5. ACETYLSALICYLIC ZUUR [Concomitant]
     Dosage: 80 MG
  6. ACETYLCYSTEINE [Concomitant]
     Dosage: 600 MG
     Dates: start: 20111006
  7. PERSANTIN [Suspect]
     Indication: PROPHYLAXIS
     Dosage: 400 MG
     Dates: start: 20110926

REACTIONS (3)
  - DYSPNOEA [None]
  - HYPERSENSITIVITY [None]
  - URTICARIA [None]
